FAERS Safety Report 16188761 (Version 3)
Quarter: 2019Q2

REPORT INFORMATION
  Report Type: Report from Study
  Country: HU (occurrence: HU)
  Receive Date: 20190412
  Receipt Date: 20190429
  Transmission Date: 20190711
  Serious: Yes (Death, Hospitalization)
  Sender: FDA-Public Use
  Company Number: HU-ROCHE-2300650

PATIENT
  Age: 43 Year
  Sex: Male

DRUGS (4)
  1. COBIMETINIB. [Suspect]
     Active Substance: COBIMETINIB
     Indication: MALIGNANT MELANOMA
     Dosage: DATE OF MOST RECENT DOSE (60 MG) OF COBIMETINIB PRIOR TO SAE ONSET: 17/FEB/2019?60 MG (THREE TABLETS
     Route: 048
     Dates: start: 20190204
  2. ATEZOLIZUMAB. [Suspect]
     Active Substance: ATEZOLIZUMAB
     Indication: METASTASES TO CENTRAL NERVOUS SYSTEM
  3. ATEZOLIZUMAB. [Suspect]
     Active Substance: ATEZOLIZUMAB
     Indication: MALIGNANT MELANOMA
     Dosage: DATE OF MOST RECENT DOSE (840 MG) OF ATEZOLIZUMAB PRIOR TO SAE ONSET: 04/FEB/2019?ATEZOLIZUMAB WILL
     Route: 042
     Dates: start: 20190204
  4. COBIMETINIB. [Suspect]
     Active Substance: COBIMETINIB
     Indication: METASTASES TO CENTRAL NERVOUS SYSTEM

REACTIONS (1)
  - Epilepsy [Fatal]

NARRATIVE: CASE EVENT DATE: 20190407
